FAERS Safety Report 13236734 (Version 1)
Quarter: 2017Q1

REPORT INFORMATION
  Report Type: Report from Study
  Country: FR (occurrence: FR)
  Receive Date: 20170215
  Receipt Date: 20170215
  Transmission Date: 20170428
  Serious: Yes (Death, Life-Threatening, Hospitalization, Other)
  Sender: FDA-Public Use
  Company Number: FR-AMGEN-FRACT2016020190

PATIENT
  Age: 66 Year
  Sex: Male
  Weight: 92 kg

DRUGS (7)
  1. DESLORATADINE. [Concomitant]
     Active Substance: DESLORATADINE
  2. CARFILZOMIB [Suspect]
     Active Substance: CARFILZOMIB
     Indication: PLASMA CELL MYELOMA
     Dosage: 160 MG, PER CHEMO REGIM
     Route: 042
     Dates: start: 20160203
  3. MELPHALAN [Concomitant]
     Active Substance: MELPHALAN
     Indication: PLASMA CELL MYELOMA
     Dosage: 22 MG, PER CHEMO REGIM
     Route: 048
     Dates: start: 20160203
  4. PREDNISONE. [Concomitant]
     Active Substance: PREDNISONE
     Indication: PLASMA CELL MYELOMA
     Dosage: 80 MG, PER CHEMO REGIM
     Route: 048
     Dates: start: 20160203
  5. PRIMPERAN [Concomitant]
     Active Substance: METOCLOPRAMIDE HYDROCHLORIDE
     Dosage: UNK
  6. COVERAM [Concomitant]
     Active Substance: AMLODIPINE\PERINDOPRIL
     Dosage: UNK
  7. DEBRIDAT [Concomitant]
     Active Substance: TRIMEBUTINE MALEATE
     Dosage: UNK

REACTIONS (3)
  - Sepsis [Fatal]
  - Cardiac arrest [Fatal]
  - Cardiac failure [Fatal]

NARRATIVE: CASE EVENT DATE: 20160214
